FAERS Safety Report 6633029-3 (Version None)
Quarter: 2010Q1

REPORT INFORMATION
  Report Type: 
  Country: None (occurrence: None)
  Receive Date: 20100312
  Receipt Date: 20100301
  Transmission Date: 20100710
  Serious: Yes (Hospitalization)
  Sender: FDA-Public Use
  Company Number: PHHY2010FR14521

PATIENT
  Sex: Male

DRUGS (6)
  1. NISISCO [Suspect]
     Dosage: 1 DF (160/12.5 MG) DAILY
     Route: 048
  2. VALSARTAN  AND HYDROCHLOROTHIAZIDE [Suspect]
     Dosage: UNK
  3. KARDEGIC [Suspect]
     Dosage: 1 DOSAGE FORM DAILY
     Route: 048
     Dates: start: 20080801, end: 20090801
  4. FENOFIBRATE [Concomitant]
     Indication: HYPERLIPIDAEMIA
  5. AMLODIPINE [Concomitant]
     Dosage: 5 MG DAILY
     Dates: start: 20080819
  6. VALSARTAN/HYDROCHLOORTHIAZIDE [Concomitant]
     Dosage: ONCE DAILY
     Route: 048
     Dates: start: 20060101, end: 20090801

REACTIONS (1)
  - EOSINOPHILIC PNEUMONIA [None]
